FAERS Safety Report 23524872 (Version 1)
Quarter: 2024Q1

REPORT INFORMATION
  Report Type: Report from Study
  Country: CA (occurrence: CA)
  Receive Date: 20240215
  Receipt Date: 20240215
  Transmission Date: 20240409
  Serious: Yes (Hospitalization, Other)
  Sender: FDA-Public Use
  Company Number: CA-CELLTRION INC.-2024CA001422

PATIENT

DRUGS (6)
  1. TRUXIMA [Suspect]
     Active Substance: RITUXIMAB-ABBS
     Indication: Rheumatoid arthritis
     Dosage: 1000 MG, DAY 1 AND 15
     Route: 042
     Dates: start: 20230815
  2. TRUXIMA [Suspect]
     Active Substance: RITUXIMAB-ABBS
     Dosage: 1000 MG
     Route: 042
     Dates: start: 20230829
  3. PREDNISONE [Concomitant]
     Active Substance: PREDNISONE
     Dosage: 1-2MG DAILY PRN (AT PATIENT^S DISCRETION)
  4. ZOLPIDEM [Concomitant]
     Active Substance: ZOLPIDEM TARTRATE
     Dosage: 5MG ODT QHS
  5. CALCIUM + MAGNESIUM [Concomitant]
     Dosage: UNK
  6. ELM [Concomitant]
     Active Substance: ELM
     Indication: Gastrooesophageal reflux disease
     Dosage: UNK

REACTIONS (1)
  - Pneumonitis [Recovering/Resolving]

NARRATIVE: CASE EVENT DATE: 20240101
